FAERS Safety Report 26059765 (Version 2)
Quarter: 2025Q4

REPORT INFORMATION
  Report Type: Spontaneous
  Country: CA (occurrence: CA)
  Receive Date: 20251118
  Receipt Date: 20251124
  Transmission Date: 20260117
  Serious: Yes (Other)
  Sender: PFIZER
  Company Number: CA-PFIZER INC-202500024551

PATIENT
  Age: 25 Year
  Sex: Male
  Weight: 84 kg

DRUGS (4)
  1. IXIFI [Suspect]
     Active Substance: INFLIXIMAB-QBTX
     Indication: Crohn^s disease
     Dosage: 400 MG, EVERY 6 WEEKS
     Route: 042
     Dates: start: 20250719
  2. IXIFI [Suspect]
     Active Substance: INFLIXIMAB-QBTX
     Dosage: 400 MG EVERY 6 WEEKS
     Route: 042
     Dates: start: 20250830
  3. IXIFI [Suspect]
     Active Substance: INFLIXIMAB-QBTX
     Dosage: 400 MG, 10 WEEKS 6 DAYS
     Route: 042
     Dates: start: 20251113
  4. IXIFI [Suspect]
     Active Substance: INFLIXIMAB-QBTX
     Dosage: 400 MG, 10 WEEKS 6 DAYS
     Route: 042
     Dates: start: 20251113

REACTIONS (4)
  - Appendicitis [Recovered/Resolved]
  - Drug ineffective [Unknown]
  - Influenza [Not Recovered/Not Resolved]
  - Off label use [Unknown]

NARRATIVE: CASE EVENT DATE: 20250101
